FAERS Safety Report 19036325 (Version 1)
Quarter: 2021Q1

REPORT INFORMATION
  Report Type: Spontaneous
  Country: US (occurrence: US)
  Receive Date: 20210319
  Receipt Date: 20210319
  Transmission Date: 20210420
  Serious: Yes (Hospitalization)
  Sender: FDA-Public Use
  Company Number: None

PATIENT
  Age: 60 Year
  Sex: Female
  Weight: 81.2 kg

DRUGS (1)
  1. ASPIRIN 300MG [Suspect]
     Active Substance: ASPIRIN
     Dates: end: 20210212

REACTIONS (2)
  - Cardiac arrest [None]
  - Acute myocardial infarction [None]

NARRATIVE: CASE EVENT DATE: 20210212
